FAERS Safety Report 12628747 (Version 1)
Quarter: 2016Q3

REPORT INFORMATION
  Report Type: Spontaneous
  Country: US (occurrence: None)
  Receive Date: 20160805
  Receipt Date: 20160805
  Transmission Date: 20161109
  Serious: Yes (Other)
  Sender: FDA-Public Use
  Company Number: None

PATIENT
  Age: 34 Year
  Sex: Female
  Weight: 90.72 kg

DRUGS (6)
  1. LEVOFLOXACIN, 500 MG ZYDUS [Suspect]
     Active Substance: LEVOFLOXACIN
     Indication: SINUSITIS
     Route: 048
     Dates: start: 20160803, end: 20160804
  2. INHALER [Concomitant]
     Active Substance: UNSPECIFIED INGREDIENT
  3. ESTRADIOL. [Concomitant]
     Active Substance: ESTRADIOL
  4. VITAMIN C [Concomitant]
     Active Substance: ASCORBIC ACID
  5. RANITIDINE. [Concomitant]
     Active Substance: RANITIDINE
  6. CHEWABLE CALCIUM BY VITAFUSION [Concomitant]

REACTIONS (7)
  - Headache [None]
  - Arthralgia [None]
  - Musculoskeletal pain [None]
  - Hallucination [None]
  - Muscular weakness [None]
  - Abnormal dreams [None]
  - Neck pain [None]

NARRATIVE: CASE EVENT DATE: 20160803
